FAERS Safety Report 4817222-8 (Version None)
Quarter: 2005Q4

REPORT INFORMATION
  Report Type: 
  Country: None (occurrence: None)
  Receive Date: 20051101
  Receipt Date: 20051026
  Transmission Date: 20060501
  Serious: Yes (Hospitalization)
  Sender: FDA-Public Use
  Company Number: US-JNJFOC-20040807319

PATIENT
  Sex: Female

DRUGS (6)
  1. DURAGESIC-100 [Suspect]
     Route: 062
     Dates: start: 20020101
  2. PREDNISONE [Concomitant]
     Indication: DRUG USE FOR UNKNOWN INDICATION
     Route: 048
  3. VICODIN ES [Concomitant]
     Route: 048
  4. VICODIN ES [Concomitant]
     Indication: PAIN
     Dosage: 7.5/500 MG 2 TO 6 TABLETS DAILY PRN
     Route: 048
  5. NEURONTIN [Concomitant]
     Indication: PAIN
     Route: 048
  6. ZANAFLEX [Concomitant]
     Route: 048

REACTIONS (17)
  - AMNESIA [None]
  - ANXIETY [None]
  - AZOTAEMIA [None]
  - BLOOD ALKALINE PHOSPHATASE INCREASED [None]
  - BLOOD CREATINE PHOSPHOKINASE INCREASED [None]
  - CHILLS [None]
  - COMA [None]
  - DRUG WITHDRAWAL SYNDROME [None]
  - HYPERGLYCAEMIA [None]
  - HYPERHIDROSIS [None]
  - HYPERTHERMIA [None]
  - HYPOKALAEMIA [None]
  - HYPONATRAEMIA [None]
  - LUNG INFILTRATION [None]
  - METABOLIC ENCEPHALOPATHY [None]
  - PAIN [None]
  - RESPIRATORY FAILURE [None]
